FAERS Safety Report 11851738 (Version 1)
Quarter: 2015Q4

REPORT INFORMATION
  Report Type: Report from Study
  Country: CA (occurrence: CA)
  Receive Date: 20151218
  Receipt Date: 20151218
  Transmission Date: 20160305
  Serious: Yes (Hospitalization)
  Sender: FDA-Public Use
  Company Number: CA-JNJFOC-20151120710

PATIENT
  Age: 32 Year
  Sex: Female
  Weight: 123.5 kg

DRUGS (2)
  1. REMICADE [Suspect]
     Active Substance: INFLIXIMAB
     Indication: COLITIS ULCERATIVE
     Route: 042
     Dates: start: 20151127, end: 20151127
  2. REMICADE [Suspect]
     Active Substance: INFLIXIMAB
     Indication: COLITIS ULCERATIVE
     Dosage: INDUCTION PHASE
     Route: 042
     Dates: start: 20151119

REACTIONS (5)
  - Malaise [Not Recovered/Not Resolved]
  - Colectomy [Unknown]
  - Haematochezia [Not Recovered/Not Resolved]
  - Off label use [Unknown]
  - Inappropriate schedule of drug administration [Unknown]

NARRATIVE: CASE EVENT DATE: 201511
